FAERS Safety Report 5247224-1 (Version None)
Quarter: 2007Q1

REPORT INFORMATION
  Report Type: 
  Country: None (occurrence: None)
  Receive Date: 20070220
  Receipt Date: 20070208
  Transmission Date: 20070707
  Serious: Yes (Death, Disabling)
  Sender: FDA-Public Use
  Company Number: OSCN-PR-0702L-0065

PATIENT
  Age: 70 Year
  Sex: Male

DRUGS (1)
  1. OMNISCAN [Suspect]
     Indication: DRUG USE FOR UNKNOWN INDICATION
     Dosage: 50 ML, SINGLE DOSE, I.A.
     Route: 014
     Dates: start: 20051202, end: 20051205

REACTIONS (2)
  - DIALYSIS [None]
  - NEPHROGENIC FIBROSING DERMOPATHY [None]
